FAERS Safety Report 4456036-8 (Version None)
Quarter: 2004Q3

REPORT INFORMATION
  Report Type: 
  Country: None (occurrence: None)
  Receive Date: 20040831
  Receipt Date: 20040716
  Transmission Date: 20050211
  Serious: No
  Sender: FDA-Public Use
  Company Number: FABR-10679

PATIENT
  Age: 29 Year
  Sex: Male
  Weight: 82.1011 kg

DRUGS (11)
  1. FABRAZYME [Suspect]
     Indication: FABRY'S DISEASE
     Dosage: 85 MG Q2WKS IV
     Route: 042
     Dates: start: 20040611
  2. PREDNISONE [Concomitant]
  3. CYCLOSPORINE [Concomitant]
  4. RAPAMUNE [Concomitant]
  5. PROTONIX XL [Concomitant]
  6. PROCARDIA XL [Concomitant]
  7. NORVASC [Concomitant]
  8. ATENOLOL [Concomitant]
  9. SODIUM BICARBONATE [Concomitant]
  10. LIPITOR [Concomitant]
  11. NEUTROPHOS [Concomitant]

REACTIONS (3)
  - BLOOD CREATININE INCREASED [None]
  - NORMOCHROMIC NORMOCYTIC ANAEMIA [None]
  - PROTEINURIA [None]
